FAERS Safety Report 11059461 (Version 1)
Quarter: 2015Q2

REPORT INFORMATION
  Report Type: Spontaneous
  Country: US (occurrence: None)
  Receive Date: 20150422
  Receipt Date: 20150422
  Transmission Date: 20150821
  Serious: Yes (Hospitalization)
  Sender: FDA-Public Use
  Company Number: None

PATIENT
  Age: 70 Year
  Sex: Male
  Weight: 77.1 kg

DRUGS (20)
  1. FISH OIL [Concomitant]
     Active Substance: FISH OIL
  2. ARMODAFINIL. [Concomitant]
     Active Substance: ARMODAFINIL
  3. HYOSCYAMINE [Concomitant]
     Active Substance: HYOSCYAMINE
  4. RIVAROXABAN [Suspect]
     Active Substance: RIVAROXABAN
     Indication: DISEASE RECURRENCE
     Route: 048
  5. ACETAMINOPHEN. [Concomitant]
     Active Substance: ACETAMINOPHEN
  6. ASPIRIN. [Concomitant]
     Active Substance: ASPIRIN
  7. METFORMIN [Concomitant]
     Active Substance: METFORMIN HYDROCHLORIDE
  8. VITAMIN D3 [Concomitant]
     Active Substance: CHOLECALCIFEROL
  9. DOCUSATE [Concomitant]
     Active Substance: DOCUSATE
  10. MULTIVITAMIN [Concomitant]
     Active Substance: VITAMINS
  11. GABAPENTIN. [Concomitant]
     Active Substance: GABAPENTIN
  12. SODIUM OXYBATE [Concomitant]
     Active Substance: SODIUM OXYBATE
  13. RIVAROXABAN [Suspect]
     Active Substance: RIVAROXABAN
     Indication: PULMONARY EMBOLISM
     Route: 048
  14. SIMVASTATIN. [Concomitant]
     Active Substance: SIMVASTATIN
  15. RIVAROXABAN [Suspect]
     Active Substance: RIVAROXABAN
     Indication: DEEP VEIN THROMBOSIS
     Route: 048
  16. TRAZODONE [Concomitant]
     Active Substance: TRAZODONE HYDROCHLORIDE
  17. OMEPRAZOLE. [Concomitant]
     Active Substance: OMEPRAZOLE
  18. POTASSIUM CHLORIDE. [Concomitant]
     Active Substance: POTASSIUM CHLORIDE
  19. SENNOSIDES. [Concomitant]
     Active Substance: SENNOSIDES
  20. CHLORTHALIDONE. [Concomitant]
     Active Substance: CHLORTHALIDONE

REACTIONS (1)
  - Small intestinal haemorrhage [None]

NARRATIVE: CASE EVENT DATE: 20150417
